FAERS Safety Report 24349674 (Version 1)
Quarter: 2024Q3

REPORT INFORMATION
  Report Type: Spontaneous
  Country: PT (occurrence: PT)
  Receive Date: 20240923
  Receipt Date: 20240923
  Transmission Date: 20241017
  Serious: No
  Sender: ROCHE
  Company Number: None

PATIENT
  Age: 70 Year
  Sex: Female
  Weight: 81.0 kg

DRUGS (5)
  1. TRASTUZUMAB [Suspect]
     Active Substance: TRASTUZUMAB
     Indication: Breast cancer
     Dosage: 648MG (LOADING DOSE)
     Route: 065
     Dates: start: 20210831
  2. OMEPRAZOLE [Concomitant]
     Active Substance: OMEPRAZOLE
  3. IRBESARTAN [Concomitant]
     Active Substance: IRBESARTAN
  4. PERTUZUMAB [Concomitant]
     Active Substance: PERTUZUMAB
  5. DIAZEPAM [Concomitant]
     Active Substance: DIAZEPAM

REACTIONS (2)
  - Pyrexia [Recovered/Resolved]
  - Tremor [Recovered/Resolved]

NARRATIVE: CASE EVENT DATE: 20210831
